FAERS Safety Report 4661992-9 (Version None)
Quarter: 2005Q2

REPORT INFORMATION
  Report Type: 
  Country: None (occurrence: None)
  Receive Date: 20050512
  Receipt Date: 20050504
  Transmission Date: 20051028
  Serious: Yes (Other)
  Sender: FDA-Public Use
  Company Number: TPA2005A00523

PATIENT
  Sex: Female

DRUGS (5)
  1. ACTOS [Suspect]
     Indication: DIABETES MELLITUS
     Dosage: 45 MG, PER ORAL
     Route: 048
  2. TOPROL-XL [Concomitant]
  3. TRIAVIL (ETRAFON-D) [Concomitant]
  4. HYDROCHLOROHIAZIDE (HYDROCHLOROTHIAZIDE) [Concomitant]
  5. DETROL [Concomitant]

REACTIONS (1)
  - NEOPLASM MALIGNANT [None]
